FAERS Safety Report 10050700 (Version 1)
Quarter: 2014Q2

REPORT INFORMATION
  Report Type: Spontaneous
  Country: US (occurrence: US)
  Receive Date: 20140401
  Receipt Date: 20140401
  Transmission Date: 20141212
  Serious: No
  Sender: FDA-Public Use
  Company Number: US-ASTRAZENECA-2013SE66282

PATIENT
  Sex: Female

DRUGS (9)
  1. NEXIUM [Suspect]
     Route: 048
  2. OMEPRAZOLE [Suspect]
     Route: 065
  3. ASPIRIN [Suspect]
     Route: 065
  4. CELEBREX [Suspect]
     Route: 065
  5. CEFAZOLIN [Suspect]
     Route: 065
  6. ROPINIROLE HYDROCHLORIDE [Suspect]
     Route: 065
  7. SULFADIAZINE [Suspect]
     Route: 065
  8. CEPHALEXIN [Suspect]
     Route: 065
  9. HYDROMORPHONE [Suspect]
     Route: 065

REACTIONS (1)
  - Drug hypersensitivity [Unknown]
